FAERS Safety Report 9132930 (Version 1)
Quarter: 2013Q1

REPORT INFORMATION
  Report Type: Report from Study
  Country: GB (occurrence: GB)
  Receive Date: 20130107
  Receipt Date: 20130107
  Transmission Date: 20140127
  Serious: Yes (Other)
  Sender: FDA-Public Use
  Company Number: GB-VERTEX PHARMACEUTICALS INC.-2013-000216

PATIENT
  Age: 49 Year
  Sex: Male

DRUGS (4)
  1. VX-950 (TELAPREVIR) [Suspect]
     Indication: HEPATITIS C
     Dosage: UNK
     Route: 048
     Dates: start: 20121008
  2. METFORMIN [Concomitant]
     Dosage: DOSAGE FORM: UNSPECIFIED
     Route: 065
  3. GABAPENTIN [Concomitant]
     Dosage: UNK, QID
     Route: 065
  4. ZOPICLONE [Concomitant]
     Dosage: UNK, PRN
     Route: 065

REACTIONS (1)
  - Lower respiratory tract infection [Not Recovered/Not Resolved]
